FAERS Safety Report 23883299 (Version 1)
Quarter: 2024Q2

REPORT INFORMATION
  Report Type: Spontaneous
  Country: US (occurrence: US)
  Receive Date: 20240522
  Receipt Date: 20240522
  Transmission Date: 20240715
  Serious: No
  Sender: FDA-Public Use
  Company Number: US-TEVA-VS-3195593

PATIENT
  Age: 58 Year
  Sex: Female

DRUGS (24)
  1. AJOVY [Suspect]
     Active Substance: FREMANEZUMAB-VFRM
     Indication: Migraine
     Dosage: 225 MG/1.5ML, POSSIBLY SEPTEMBER 2021
     Route: 065
  2. AJOVY [Suspect]
     Active Substance: FREMANEZUMAB-VFRM
  3. DULOXETINE [Concomitant]
     Active Substance: DULOXETINE
     Route: 065
  4. HYDROXYZINE [Concomitant]
     Active Substance: HYDROXYZINE HYDROCHLORIDE
     Route: 065
  5. RIZATRIPTAN [Concomitant]
     Active Substance: RIZATRIPTAN
     Dosage: 10 MG AS NEEDED
     Route: 065
  6. ATROVENT [Concomitant]
     Active Substance: IPRATROPIUM BROMIDE
     Dosage: AS NEEDED
     Route: 065
  7. HYOSCYAMINE [Concomitant]
     Active Substance: HYOSCYAMINE
     Dosage: AS NEEDED
     Route: 065
  8. METOPROLOL [Concomitant]
     Active Substance: METOPROLOL
     Route: 065
  9. LAMOTRIGINE [Concomitant]
     Active Substance: LAMOTRIGINE
     Route: 065
  10. CYCLOBENZAPRINE [Concomitant]
     Active Substance: CYCLOBENZAPRINE
     Dosage: 10MG AS NEEDED
     Route: 065
  11. NAPROXEN [Concomitant]
     Active Substance: NAPROXEN
     Dosage: 20 MG AS NEEDED
     Route: 065
  12. VICODIN [Concomitant]
     Active Substance: ACETAMINOPHEN\HYDROCODONE BITARTRATE
     Dosage: 5/300 AS NEEDED
     Route: 065
  13. FLONASE [Concomitant]
     Active Substance: FLUTICASONE PROPIONATE
     Dosage: AS NEEDED
     Route: 065
  14. AMLODIPINE [Concomitant]
     Active Substance: AMLODIPINE BESYLATE
     Route: 065
  15. VYVANSE [Concomitant]
     Active Substance: LISDEXAMFETAMINE DIMESYLATE
     Route: 065
  16. Vsl3 visbiome (Probiotic) [Concomitant]
  17. VITAMINS [Concomitant]
     Active Substance: VITAMINS
  18. VITAMIN D [Concomitant]
     Active Substance: VITAMIN D NOS
  19. ADDERALL [Concomitant]
     Active Substance: AMPHETAMINE ASPARTATE\AMPHETAMINE SULFATE\DEXTROAMPHETAMINE SACCHARATE\DEXTROAMPHETAMINE SULFATE
     Route: 065
  20. TOPIRAMATE [Concomitant]
     Active Substance: TOPIRAMATE
     Route: 065
  21. BENEFIBER [Concomitant]
     Active Substance: STARCH, WHEAT
  22. BIOTIN [Concomitant]
     Active Substance: BIOTIN
  23. VITAMIN C [Concomitant]
     Active Substance: ASCORBIC ACID
  24. FISH OIL [Concomitant]
     Active Substance: FISH OIL

REACTIONS (9)
  - Product dose omission issue [Not Recovered/Not Resolved]
  - Diarrhoea [Unknown]
  - Migraine [Unknown]
  - Stress [Unknown]
  - Fatigue [Not Recovered/Not Resolved]
  - Depression [Not Recovered/Not Resolved]
  - Anxiety [Recovering/Resolving]
  - Gastrointestinal pain [Unknown]
  - Product storage error [Not Recovered/Not Resolved]
